FAERS Safety Report 7201682-1 (Version None)
Quarter: 2010Q4

REPORT INFORMATION
  Report Type: 
  Country: None (occurrence: None)
  Receive Date: 20101229
  Receipt Date: 20101221
  Transmission Date: 20110411
  Serious: Yes (Hospitalization, Other)
  Sender: FDA-Public Use
  Company Number: US-PFIZER INC-2010176935

PATIENT
  Sex: Male
  Weight: 68.027 kg

DRUGS (4)
  1. LIPITOR [Suspect]
     Indication: BLOOD CHOLESTEROL
     Dosage: UNK MG, UNK
     Route: 048
  2. LIPITOR [Suspect]
     Indication: THROMBOSIS
  3. NITROGLYCERIN [Concomitant]
     Indication: CARDIAC DISORDER
     Dosage: UNK
  4. PLAVIX [Concomitant]
     Indication: ANTICOAGULANT THERAPY
     Dosage: UNK
     Route: 048

REACTIONS (14)
  - ABDOMINAL PAIN UPPER [None]
  - ANEURYSM [None]
  - AORTIC ANEURYSM [None]
  - BLOOD PRESSURE DECREASED [None]
  - CHRONIC OBSTRUCTIVE PULMONARY DISEASE [None]
  - DIZZINESS [None]
  - DYSPHAGIA [None]
  - DYSPNOEA [None]
  - DYSSTASIA [None]
  - MUSCLE SPASMS [None]
  - MUSCULAR WEAKNESS [None]
  - MYALGIA [None]
  - PALLOR [None]
  - PHARYNGEAL DISORDER [None]
